FAERS Safety Report 7785262-5 (Version None)
Quarter: 2011Q3

REPORT INFORMATION
  Report Type: 
  Country: None (occurrence: None)
  Receive Date: 20110929
  Receipt Date: 20110929
  Transmission Date: 20111222
  Serious: Yes (Hospitalization)
  Sender: FDA-Public Use
  Company Number: PHHO2010NL08066

PATIENT
  Sex: Male
  Weight: 57 kg

DRUGS (3)
  1. ILARIS [Suspect]
     Indication: JUVENILE ARTHRITIS
     Dosage: 4 MG/KG,
     Route: 058
     Dates: start: 20100412
  2. ILARIS [Suspect]
     Dosage: 4 MG/KG
     Route: 058
     Dates: start: 20100512
  3. NO TREATMENT RECEIVED [Suspect]
     Indication: JUVENILE ARTHRITIS
     Dosage: NO TREATMENT

REACTIONS (7)
  - ARTHRALGIA [None]
  - DIARRHOEA [None]
  - DISORIENTATION [None]
  - HEADACHE [None]
  - GASTROENTERITIS ADENOVIRUS [None]
  - PYREXIA [None]
  - VOMITING [None]
